FAERS Safety Report 24331988 (Version 2)
Quarter: 2024Q4

REPORT INFORMATION
  Report Type: Spontaneous
  Country: JP (occurrence: JP)
  Receive Date: 20240918
  Receipt Date: 20241011
  Transmission Date: 20250114
  Serious: Yes (Death, Other)
  Sender: ALEXION PHARMACEUTICALS
  Company Number: 2024A212059

PATIENT

DRUGS (4)
  1. ONDEXXYA [Suspect]
     Active Substance: ANDEXANET ALFA
     Indication: Intra-abdominal haemorrhage
     Dosage: 880 MILLIGRAM, UNK
  2. ONDEXXYA [Suspect]
     Active Substance: ANDEXANET ALFA
     Dosage: 880 MILLIGRAM, UNK
  3. ONDEXXYA [Suspect]
     Active Substance: ANDEXANET ALFA
     Dosage: 880 MILLIGRAM, UNK
  4. ONDEXXYA [Suspect]
     Active Substance: ANDEXANET ALFA
     Dosage: 880 MILLIGRAM, UNK

REACTIONS (1)
  - Thrombosis [Fatal]
